FAERS Safety Report 5376003-X (Version None)
Quarter: 2007Q2

REPORT INFORMATION
  Report Type: 
  Country: None (occurrence: None)
  Receive Date: 20070627
  Receipt Date: 20070627
  Transmission Date: 20071010
  Serious: Yes (Other)
  Sender: FDA-Public Use
  Company Number: None

PATIENT
  Sex: Female
  Weight: 122.6526 kg

DRUGS (10)
  1. SMZ/TMP 800MG/160MG MUTUAL PHARMACEUTICAL [Suspect]
     Indication: CELLULITIS
     Dosage: 1 TABLET BID PO
     Route: 048
     Dates: start: 20070514
  2. SMZ/TMP 800MG/160MG MUTUAL PHARMACEUTICAL [Suspect]
     Indication: CELLULITIS
     Dosage: 1 TABLET BID PO
     Route: 048
     Dates: start: 20070611
  3. MULTI-VITAMIN [Concomitant]
  4. LISINOPRIL [Concomitant]
  5. SIMVASTATIN [Concomitant]
  6. PIOGLITAZONE [Concomitant]
  7. ASPIRIN [Concomitant]
  8. SERTRALINE [Concomitant]
  9. LEVOTHYROXINE SODIUM [Concomitant]
  10. REGULAR INSULIN [Concomitant]

REACTIONS (6)
  - CELLULITIS [None]
  - CHILLS [None]
  - HEADACHE [None]
  - PAIN [None]
  - PYREXIA [None]
  - URTICARIA [None]
